FAERS Safety Report 17532593 (Version 1)
Quarter: 2020Q1

REPORT INFORMATION
  Report Type: Spontaneous
  Country: US (occurrence: US)
  Receive Date: 20200304
  Receipt Date: 20200304
  Transmission Date: 20200409
  Serious: Yes (Hospitalization)
  Sender: FDA-Public Use
  Company Number: None

PATIENT
  Age: 39 Year
  Sex: Female

DRUGS (1)
  1. COSENTYX [Suspect]
     Active Substance: SECUKINUMAB
     Indication: RASH PAPULOSQUAMOUS
     Dosage: ?          OTHER FREQUENCY:EVERY 4 WEEKS;?
     Route: 058
     Dates: start: 201805

REACTIONS (1)
  - Rash [None]

NARRATIVE: CASE EVENT DATE: 20191217
